FAERS Safety Report 6999407-8 (Version None)
Quarter: 2010Q3

REPORT INFORMATION
  Report Type: 
  Country: None (occurrence: None)
  Receive Date: 20100920
  Receipt Date: 20100709
  Transmission Date: 20110219
  Serious: Yes (Hospitalization)
  Sender: FDA-Public Use
  Company Number: US-ASTRAZENECA-2010SE32096

PATIENT
  Age: 24592 Day
  Sex: Male
  Weight: 75.7 kg

DRUGS (14)
  1. SEROQUEL [Suspect]
     Indication: SLEEP DISORDER
     Route: 048
     Dates: start: 20091101
  2. SEROQUEL [Suspect]
     Indication: DEPRESSION
     Route: 048
     Dates: start: 20091101
  3. PROAMATINE [Concomitant]
  4. LANOXIN [Concomitant]
  5. CORDARONE [Concomitant]
  6. SYNTHROID [Concomitant]
  7. CYMBALTA [Concomitant]
  8. NEURONTIN [Concomitant]
  9. SINEMET [Concomitant]
  10. COGENTIN [Concomitant]
  11. CELEXA [Concomitant]
  12. ARICEPT [Concomitant]
  13. DEPAKOTE [Concomitant]
  14. VIT D [Concomitant]

REACTIONS (2)
  - DEPRESSION [None]
  - DRUG INEFFECTIVE [None]
